FAERS Safety Report 10591176 (Version 4)
Quarter: 2015Q4

REPORT INFORMATION
  Report Type: Report from Study
  Country: US (occurrence: US)
  Receive Date: 20141118
  Receipt Date: 20151229
  Transmission Date: 20160304
  Serious: Yes (Other)
  Sender: FDA-Public Use
  Company Number: US-SA-2014SA109895

PATIENT
  Age: 52 Year
  Sex: Male

DRUGS (1)
  1. AUBAGIO [Suspect]
     Active Substance: TERIFLUNOMIDE
     Indication: MULTIPLE SCLEROSIS
     Route: 048
     Dates: start: 20130101

REACTIONS (6)
  - Dysgraphia [Unknown]
  - Reading disorder [Unknown]
  - Memory impairment [Unknown]
  - Visual impairment [Unknown]
  - Aphasia [Unknown]
  - Wheelchair user [Unknown]
